FAERS Safety Report 10305938 (Version 2)
Quarter: 2014Q3

REPORT INFORMATION
  Report Type: Spontaneous
  Country: US (occurrence: None)
  Receive Date: 20140711
  Receipt Date: 20140813
  Transmission Date: 20150326
  Serious: Yes (Other)
  Sender: FDA-Public Use
  Company Number: UCM201406-000122

PATIENT
  Age: 65 Year
  Sex: Female
  Weight: 68 kg

DRUGS (2)
  1. HYDROCHLOROTHIAZIDE (HYDROCHLOROTHIAZIDE) [Suspect]
     Active Substance: HYDROCHLOROTHIAZIDE
     Indication: HYPERTENSION
     Route: 048
     Dates: end: 201406
  2. CARVEDILOL (CARVEDILOL) [Concomitant]
     Active Substance: CARVEDILOL

REACTIONS (4)
  - Ventricular extrasystoles [None]
  - Malaise [None]
  - Product quality issue [None]
  - Anxiety [None]

NARRATIVE: CASE EVENT DATE: 20140604
